FAERS Safety Report 9769175 (Version 6)
Quarter: 2016Q2

REPORT INFORMATION
  Report Type: Spontaneous
  Country: US (occurrence: US)
  Receive Date: 20131218
  Receipt Date: 20160419
  Transmission Date: 20160815
  Serious: Yes (Hospitalization, Other)
  Sender: FDA-Public Use
  Company Number: US-009507513-1312USA005252

PATIENT
  Sex: Female

DRUGS (4)
  1. FOSAMAX [Suspect]
     Active Substance: ALENDRONATE SODIUM
     Indication: OSTEOPOROSIS
     Dosage: 70 MG, QW
     Route: 048
     Dates: start: 2003, end: 20080211
  2. VITAMINS (UNSPECIFIED) [Concomitant]
     Active Substance: VITAMINS
     Indication: PRODUCT USED FOR UNKNOWN INDICATION
     Dosage: UNK, QD
     Route: 065
     Dates: start: 2003
  3. ALENDRONATE SODIUM. [Suspect]
     Active Substance: ALENDRONATE SODIUM
     Indication: OSTEOPOROSIS
     Dosage: 70 MG, QW
     Route: 048
     Dates: start: 200802, end: 20151106
  4. CALCIUM (UNSPECIFIED) [Concomitant]
     Active Substance: CALCIUM
     Indication: PRODUCT USED FOR UNKNOWN INDICATION
     Dosage: 500 MG, TID
     Route: 065
     Dates: start: 2003

REACTIONS (18)
  - Oestrogen deficiency [Unknown]
  - Pyuria [Unknown]
  - Peptic ulcer [Unknown]
  - Cerebral atrophy [Unknown]
  - Femur fracture [Recovered/Resolved]
  - Gastrooesophageal reflux disease [Unknown]
  - Osteoporosis [Unknown]
  - Blood pressure increased [Unknown]
  - Breast cancer [Unknown]
  - Seizure [Unknown]
  - Tooth extraction [Unknown]
  - Back pain [Unknown]
  - Osteoarthritis [Unknown]
  - Oesophageal squamous cell carcinoma [Recovered/Resolved]
  - Femur fracture [Unknown]
  - Dyslipidaemia [Unknown]
  - Intervertebral disc degeneration [Not Recovered/Not Resolved]
  - Gout [Unknown]

NARRATIVE: CASE EVENT DATE: 2003
